FAERS Safety Report 4341343-X (Version None)
Quarter: 2004Q1

REPORT INFORMATION
  Report Type: 
  Country: None (occurrence: None)
  Receive Date: 20040329
  Receipt Date: 20040220
  Transmission Date: 20041129
  Serious: No
  Sender: FDA-Public Use
  Company Number: 04P-163-0251039-00

PATIENT
  Age: 38 Year
  Sex: Female
  Weight: 61.2356 kg

DRUGS (4)
  1. HUMIRA [Suspect]
     Indication: INFERTILITY
     Dosage: 40 MG, 1 IN 2 WK, SUBCUTANEOUS
     Route: 058
     Dates: start: 20040123
  2. PRENATAL VITAMIN (PRENATAL) [Concomitant]
  3. FISH OIL [Concomitant]
  4. ASPIRIN [Concomitant]

REACTIONS (1)
  - CHEST PAIN [None]
